FAERS Safety Report 4718595-7 (Version None)
Quarter: 2005Q3

REPORT INFORMATION
  Report Type: 
  Country: None (occurrence: None)
  Receive Date: 20050720
  Receipt Date: 20050715
  Transmission Date: 20060218
  Serious: Yes (Life-Threatening, Hospitalization, Disabling, Other)
  Sender: FDA-Public Use
  Company Number: US-GLAXOSMITHKLINE-A0566464A

PATIENT
  Age: 43 Year
  Sex: Male

DRUGS (5)
  1. EPZICOM [Suspect]
     Indication: HIV INFECTION
     Dosage: 1TAB PER DAY
     Route: 048
     Dates: start: 20050614, end: 20050624
  2. VIREAD [Concomitant]
  3. SUSTIVA [Concomitant]
  4. BACTRIM [Concomitant]
  5. BENADRYL [Concomitant]

REACTIONS (6)
  - DYSPNOEA [None]
  - HYPOTENSION [None]
  - NAUSEA [None]
  - PALPITATIONS [None]
  - RASH GENERALISED [None]
  - VOMITING [None]
